FAERS Safety Report 11177055 (Version 1)
Quarter: 2015Q2

REPORT INFORMATION
  Report Type: Spontaneous
  Country: US (occurrence: None)
  Receive Date: 20150515
  Receipt Date: 20150515
  Transmission Date: 20150821
  Serious: Yes (Life-Threatening)
  Sender: FDA-Public Use
  Company Number: 2015006005

PATIENT

DRUGS (1)
  1. CIMZIA [Suspect]
     Active Substance: CERTOLIZUMAB PEGOL
     Indication: PRODUCT USED FOR UNKNOWN INDICATION
     Dosage: 2 ML EV 2 WEEKS (QOW), 2/PKG, SUBCUTANEOUS
     Route: 058
     Dates: start: 20140102, end: 201401

REACTIONS (1)
  - Laryngeal cancer [None]

NARRATIVE: CASE EVENT DATE: 201401
